FAERS Safety Report 8352756-3 (Version None)
Quarter: 2012Q2

REPORT INFORMATION
  Report Type: 
  Country: None (occurrence: None)
  Receive Date: 20120511
  Receipt Date: 20120427
  Transmission Date: 20120825
  Serious: Yes (Hospitalization)
  Sender: FDA-Public Use
  Company Number: FR-SANOFI-AVENTIS-2012SA031687

PATIENT
  Age: 89 Year
  Sex: Female
  Weight: 57 kg

DRUGS (6)
  1. IRBESARTAN [Suspect]
     Dosage: FREQUENCY:1-0-0
     Route: 048
  2. AMLODIPINE BESYLATE [Suspect]
     Dosage: FREQUENCY: 1-0-1
     Route: 048
  3. AMLODIPINE BESYLATE [Suspect]
     Dosage: 20 INTAKES
     Route: 048
     Dates: start: 20120414, end: 20120415
  4. PLAVIX [Suspect]
     Route: 065
     Dates: start: 20120414, end: 20120415
  5. PLAVIX [Suspect]
     Route: 065
  6. IRBESARTAN [Suspect]
     Dosage: 56 INTAKES
     Route: 048
     Dates: start: 20120414, end: 20120415

REACTIONS (2)
  - HYPOTENSION [None]
  - RENAL FAILURE ACUTE [None]
